FAERS Safety Report 21126695 (Version 1)
Quarter: 2022Q3

REPORT INFORMATION
  Report Type: Spontaneous
  Country: US (occurrence: None)
  Receive Date: 20220725
  Receipt Date: 20220725
  Transmission Date: 20221027
  Serious: No
  Sender: FDA-Public Use
  Company Number: None

PATIENT
  Sex: Female

DRUGS (1)
  1. PAXLOVID [Suspect]
     Active Substance: NIRMATRELVIR\RITONAVIR
     Indication: COVID-19
     Dates: start: 20220713, end: 20220718

REACTIONS (5)
  - Tachycardia [None]
  - Cough [None]
  - Rhinorrhoea [None]
  - Fatigue [None]
  - Night sweats [None]

NARRATIVE: CASE EVENT DATE: 20220723
